FAERS Safety Report 9395162 (Version 1)
Quarter: 2013Q3

REPORT INFORMATION
  Report Type: Spontaneous
  Country: DE (occurrence: DE)
  Receive Date: 20130705
  Receipt Date: 20130705
  Transmission Date: 20140515
  Serious: Yes (Congenital Anomaly, Other)
  Sender: FDA-Public Use
  Company Number: AUR-APL-2013-05481

PATIENT
  Sex: Female
  Weight: 2.6 kg

DRUGS (4)
  1. MIRTAZAPINE (MIRTAZAPINE) [Suspect]
     Indication: DEPRESSION
     Route: 064
  2. BISOPROLOL (BISOPROLOL) [Suspect]
     Indication: HYPERTENSION
     Dosage: TWO DOSES OF 0.5 MG PER DAY.
     Route: 064
  3. METOPROLOL (METOPROLOL) [Suspect]
     Indication: HYPERTENSION
     Route: 064
  4. FOLSAEURE (FOLIC ACID) [Concomitant]

REACTIONS (4)
  - Congenital hydronephrosis [None]
  - Renal aplasia [None]
  - Low birth weight baby [None]
  - Maternal drugs affecting foetus [None]
